FAERS Safety Report 4954442-6 (Version None)
Quarter: 2006Q1

REPORT INFORMATION
  Report Type: 
  Country: None (occurrence: None)
  Receive Date: 20060322
  Receipt Date: 20060307
  Transmission Date: 20060701
  Serious: Yes (Other)
  Sender: FDA-Public Use
  Company Number: BMRN-2006-003

PATIENT
  Age: 80 Year
  Sex: Male

DRUGS (4)
  1. ORAPRED(PREDNISOLONE SODIUM PHOSPHATE) SOLUTION (EXCEPT SYRUP), 20.2MG [Suspect]
     Indication: PEMPHIGOID
     Dosage: 45 MG, QD, ORAL
     Route: 048
  2. CYCLOSPORINE [Concomitant]
  3. TETRACYCLINE HYDROCHLORIDE [Concomitant]
  4. NICOTINAMIDE [Concomitant]

REACTIONS (5)
  - EMBOLISM VENOUS [None]
  - PELVIC VENOUS THROMBOSIS [None]
  - PLATELET COUNT DECREASED [None]
  - PROTHROMBIN TIME PROLONGED [None]
  - PULMONARY VASCULAR DISORDER [None]
